FAERS Safety Report 6225748-8 (Version None)
Quarter: 2009Q2

REPORT INFORMATION
  Report Type: 
  Country: None (occurrence: None)
  Receive Date: 20090612
  Receipt Date: 20090609
  Transmission Date: 20091009
  Serious: Yes (Hospitalization, Other)
  Sender: FDA-Public Use
  Company Number: US-RANBAXY-2009US-23861

PATIENT

DRUGS (1)
  1. CIPROFLOXACIN [Suspect]
     Indication: PROSTATITIS
     Dosage: 500 MG, BID
     Route: 048
     Dates: start: 20080304

REACTIONS (5)
  - ACUTE HEPATIC FAILURE [None]
  - HEPATOMEGALY [None]
  - RASH [None]
  - SPLENOMEGALY [None]
  - WEIGHT INCREASED [None]
